FAERS Safety Report 13547864 (Version 1)
Quarter: 2017Q2

REPORT INFORMATION
  Report Type: Spontaneous
  Country: US (occurrence: US)
  Receive Date: 20170516
  Receipt Date: 20170516
  Transmission Date: 20170830
  Serious: No
  Sender: FDA-Public Use
  Company Number: US-BAUSCH-BL-2017-004176

PATIENT
  Age: 52 Year
  Sex: Female

DRUGS (2)
  1. LATANOPROST OPHTHALMIC SOLUTION 0.005% [Suspect]
     Active Substance: LATANOPROST
     Indication: GLAUCOMA
     Dosage: INTO BOTH EYES
     Route: 047
     Dates: end: 201702
  2. LATANOPROST OPHTHALMIC SOLUTION 0.005% [Suspect]
     Active Substance: LATANOPROST
     Dosage: INTO BOTH EYES
     Route: 047
     Dates: start: 20170214, end: 20170214

REACTIONS (7)
  - Drug intolerance [Unknown]
  - Visual impairment [Recovering/Resolving]
  - Intraocular pressure increased [Recovering/Resolving]
  - Product closure removal difficult [Unknown]
  - Asthenopia [Recovering/Resolving]
  - Instillation site pain [Recovering/Resolving]
  - Treatment noncompliance [Unknown]
